FAERS Safety Report 7154750-7 (Version None)
Quarter: 2010Q4

REPORT INFORMATION
  Report Type: 
  Country: None (occurrence: None)
  Receive Date: 20101214
  Receipt Date: 20091107
  Transmission Date: 20110411
  Serious: No
  Sender: FDA-Public Use
  Company Number: US-AMGEN-KDL373520

PATIENT

DRUGS (6)
  1. ENBREL [Suspect]
     Indication: PSORIATIC ARTHROPATHY
     Dosage: 50 MG, QWK
     Route: 058
     Dates: start: 20031001
  2. ENBREL [Suspect]
     Indication: PSORIASIS
  3. IBANDRONATE SODIUM [Concomitant]
     Dosage: 150 MG, UNK
     Dates: start: 20080415
  4. SERTRALINE HYDROCHLORIDE [Concomitant]
     Dosage: 100 MG, UNK
     Dates: start: 20070529
  5. LANSOPRAZOLE [Concomitant]
     Dosage: UNK UNK, UNK
     Dates: start: 20070529
  6. PREDNISONE [Concomitant]
     Dosage: UNK UNK, UNK
     Dates: start: 20080415, end: 20090407

REACTIONS (4)
  - DRUG DOSE OMISSION [None]
  - HERPES ZOSTER [None]
  - PSORIASIS [None]
  - PSORIATIC ARTHROPATHY [None]
